FAERS Safety Report 5799060-5 (Version None)
Quarter: 2008Q3

REPORT INFORMATION
  Report Type: 
  Country: None (occurrence: None)
  Receive Date: 20080702
  Receipt Date: 20080627
  Transmission Date: 20090109
  Serious: Yes (Hospitalization)
  Sender: FDA-Public Use
  Company Number: IE-BOEHRINGER INGELHEIM GMBH, GERMANY-2008-BP-09971RO

PATIENT
  Age: 79 Year
  Sex: Female

DRUGS (5)
  1. CLARITHROMYCIN [Suspect]
     Indication: PNEUMONIA
  2. CEFTRIAXONE [Suspect]
     Indication: PNEUMONIA
  3. AMIODARONE HCL [Concomitant]
     Indication: TORSADE DE POINTES
     Route: 042
  4. BETABLOCKER [Concomitant]
     Indication: TORSADE DE POINTES
     Route: 048
  5. BETABLOCKER [Concomitant]
     Indication: ATRIOVENTRICULAR BLOCK COMPLETE

REACTIONS (3)
  - ATRIOVENTRICULAR BLOCK COMPLETE [None]
  - PERICARDIAL EFFUSION [None]
  - TORSADE DE POINTES [None]
